FAERS Safety Report 5843106-2 (Version None)
Quarter: 2008Q3

REPORT INFORMATION
  Report Type: 
  Country: None (occurrence: None)
  Receive Date: 20080811
  Receipt Date: 20080729
  Transmission Date: 20090109
  Serious: Yes (Hospitalization)
  Sender: FDA-Public Use
  Company Number: 1000000394

PATIENT
  Age: 75 Year
  Sex: Male

DRUGS (5)
  1. MEMANTINE HCL [Suspect]
     Dosage: 20 MG 910 MG, 2 IN 1 D), ORAL
     Route: 048
  2. ARICEPT [Suspect]
     Dosage: 10 MG (10 MG, 1 IN 1 D) ORAL
     Route: 048
  3. KARDEGIC (75 MILLIGRAM, POWDER) [Suspect]
     Dosage: 75 MG (75 MG, 1 IN 1 D); ORAL
     Route: 048
  4. OMIX (0.4 MILLIGRAM, CAPSULES) [Suspect]
     Dosage: 0.4 (0.4 MG, 1 IN 1 D); ORAL
     Route: 048
  5. FONZYLANE (150 MILLIGRAM, TABLETS) [Suspect]
     Dosage: 600 MG 9150 MG, 4 IN 1 D); ORAL
     Route: 048
     Dates: end: 20080531

REACTIONS (6)
  - BRAIN SCAN ABNORMAL [None]
  - CEREBRAL ATROPHY [None]
  - CEREBRAL ISCHAEMIA [None]
  - ELECTROENCEPHALOGRAM ABNORMAL [None]
  - GRAND MAL CONVULSION [None]
  - SOMNOLENCE [None]
